FAERS Safety Report 7649438-X (Version None)
Quarter: 2011Q3

REPORT INFORMATION
  Report Type: 
  Country: None (occurrence: None)
  Receive Date: 20110802
  Receipt Date: 20110725
  Transmission Date: 20111222
  Serious: Yes (Disabling)
  Sender: FDA-Public Use
  Company Number: JP-ASTELLAS-2011JP005074

PATIENT
  Sex: Male
  Weight: 43.4 kg

DRUGS (28)
  1. TACROLIMUS [Suspect]
     Dosage: UNK
     Route: 048
     Dates: start: 20101119, end: 20101122
  2. IMURAN [Concomitant]
     Indication: COLITIS ULCERATIVE
     Dosage: 25 MG, UNKNOWN/D
     Route: 048
     Dates: start: 20100923, end: 20100929
  3. PREDNISOLONE [Concomitant]
     Indication: COLITIS ULCERATIVE
     Dosage: 20 MG, UNKNOWN/D
     Route: 048
     Dates: end: 20100825
  4. PREDNISOLONE [Concomitant]
     Dosage: 10 MG, UNKNOWN/D
     Route: 048
     Dates: start: 20101214, end: 20101227
  5. OMEPRAZOLE [Concomitant]
     Dosage: UNK
     Route: 065
     Dates: start: 20101028, end: 20101104
  6. GANCICLOVIR [Suspect]
     Dosage: UNK
     Route: 065
     Dates: start: 20101027, end: 20101104
  7. PREDNISOLONE [Concomitant]
     Dosage: 4 MG, UNKNOWN/D
     Route: 065
     Dates: start: 20110419, end: 20110509
  8. STERONEMA [Concomitant]
     Indication: COLITIS ULCERATIVE
     Dosage: 3 MG, UNKNOWN/D
     Route: 054
     Dates: start: 20101006, end: 20101027
  9. TACROLIMUS [Suspect]
     Indication: COLITIS ULCERATIVE
     Dosage: UNK
     Route: 048
     Dates: start: 20101115, end: 20101118
  10. TACROLIMUS [Suspect]
     Dosage: UNK
     Route: 048
     Dates: start: 20101123, end: 20101128
  11. GANCICLOVIR [Suspect]
     Dosage: UNK
     Route: 065
     Dates: start: 20101112, end: 20101118
  12. ASACOL [Concomitant]
     Indication: COLITIS ULCERATIVE
     Dosage: 1210 MG, UNKNOWN/D
     Route: 048
     Dates: start: 20101214, end: 20101226
  13. PREDNISOLONE [Concomitant]
     Dosage: 25 MG, UNKNOWN/D
     Route: 048
     Dates: start: 20101119, end: 20101125
  14. PREDNISOLONE [Concomitant]
     Dosage: 15 MG, UNKNOWN/D
     Route: 048
     Dates: start: 20101228, end: 20110124
  15. LEVOFLOXACIN [Concomitant]
     Dosage: UNK
     Route: 048
     Dates: start: 20100915, end: 20100922
  16. MEROPENEM [Concomitant]
     Dosage: UNK
     Route: 065
     Dates: start: 20101027, end: 20101104
  17. PREDNISOLONE [Concomitant]
     Dosage: UNK %, UNKNOWN/D
     Route: 048
     Dates: start: 20100826, end: 20101027
  18. PREDNISOLONE [Concomitant]
     Dosage: 20 MG, UNKNOWN/D
     Route: 048
     Dates: start: 20101126, end: 20101202
  19. PREDNISOLONE [Concomitant]
     Dosage: 15 MG, UNKNOWN/D
     Route: 048
     Dates: start: 20101203, end: 20101213
  20. PREDNISOLONE [Concomitant]
     Dosage: 5 MG, UNKNOWN/D
     Route: 048
     Dates: start: 20110101, end: 20110418
  21. PREDNISOLONE [Concomitant]
     Dosage: UNK
     Route: 065
     Dates: start: 20100826, end: 20101027
  22. TACROLIMUS [Suspect]
     Dosage: UNK
     Route: 048
     Dates: start: 20101129, end: 20110220
  23. PREDNISOLONE [Concomitant]
     Dosage: 10 MG, UNKNOWN/D
     Route: 048
     Dates: start: 20110125, end: 20110101
  24. LEVOFLOXACIN [Concomitant]
     Dosage: UNK
     Route: 048
     Dates: start: 20110220, end: 20110304
  25. PREDNISOLONE [Concomitant]
     Dosage: 50 MG, UNKNOWN/D
     Route: 065
     Dates: start: 20101028, end: 20101104
  26. PREDNISOLONE [Concomitant]
     Dosage: 40 MG, UNKNOWN/D
     Route: 065
     Dates: start: 20101105, end: 20101111
  27. PREDNISOLONE [Concomitant]
     Dosage: 30 MG, UNKNOWN/D
     Route: 065
     Dates: start: 20101112, end: 20101118
  28. IMURAN [Concomitant]
     Dosage: 50 MG, UNKNOWN/D
     Route: 048
     Dates: start: 20100930, end: 20101102

REACTIONS (1)
  - LIVER DISORDER [None]
